FAERS Safety Report 9135702 (Version 2)
Quarter: 2013Q1

REPORT INFORMATION
  Report Type: Spontaneous
  Country: FR (occurrence: FR)
  Receive Date: 20130304
  Receipt Date: 20130315
  Transmission Date: 20140127
  Serious: Yes (Hospitalization, Other)
  Sender: FDA-Public Use
  Company Number: FR-009507513-1302FRA013287

PATIENT
  Age: 60 Year
  Sex: Male

DRUGS (4)
  1. EMEND [Suspect]
     Indication: PROPHYLAXIS OF NAUSEA AND VOMITING
     Dosage: 125 MG, UNK
     Route: 048
     Dates: start: 20121009, end: 20121009
  2. EMEND [Interacting]
     Indication: PROPHYLAXIS OF NAUSEA AND VOMITING
     Dosage: 80 MG, QD
     Route: 048
     Dates: start: 20121010, end: 20121011
  3. DOXORUBICIN [Suspect]
     Indication: RHABDOMYOSARCOMA
     Dosage: UNK
     Route: 042
     Dates: start: 20121009, end: 20121011
  4. IFOSFAMIDE [Interacting]
     Indication: RHABDOMYOSARCOMA
     Dosage: 4600 MG, QD
     Dates: start: 20121009, end: 20121011

REACTIONS (2)
  - Encephalopathy [Recovered/Resolved]
  - Drug interaction [Unknown]
